FAERS Safety Report 5117697-3 (Version None)
Quarter: 2006Q3

REPORT INFORMATION
  Report Type: 
  Country: None (occurrence: None)
  Receive Date: 20060926
  Receipt Date: 20060905
  Transmission Date: 20061208
  Serious: Yes (Other)
  Sender: FDA-Public Use
  Company Number: CH200608004478

PATIENT
  Age: 75 Year
  Sex: Female

DRUGS (3)
  1. ZYPREXA [Suspect]
     Indication: SCHIZOPHRENIA
  2. REMERON [Concomitant]
  3. TRUXAL /SWE/ (CHLORPROTHIXENE HYDROCHLORIDE) [Concomitant]

REACTIONS (4)
  - GENERAL PHYSICAL HEALTH DETERIORATION [None]
  - LIVER FUNCTION TEST ABNORMAL [None]
  - METASTASES TO SMALL INTESTINE [None]
  - NAUSEA [None]
